FAERS Safety Report 20070014 (Version 1)
Quarter: 2021Q4

REPORT INFORMATION
  Report Type: Spontaneous
  Country: US (occurrence: None)
  Receive Date: 20211112
  Receipt Date: 20211112
  Transmission Date: 20220303
  Serious: Yes (Other)
  Sender: FDA-Public Use
  Company Number: None

PATIENT
  Age: 81 Year
  Sex: Female
  Weight: 70 kg

DRUGS (11)
  1. PIQRAY [Suspect]
     Active Substance: ALPELISIB
     Indication: Breast cancer female
     Dosage: FREQUENCY : DAILY;?
     Route: 048
  2. AMLODIPINE-BENZEPRIL [Concomitant]
  3. ASPIRIN [Concomitant]
     Active Substance: ASPIRIN
  4. CALCIUM CARBONATE [Concomitant]
     Active Substance: CALCIUM CARBONATE
  5. DOXYCYCLINE HYCLATE [Concomitant]
     Active Substance: DOXYCYCLINE HYCLATE
  6. EZETIMIBE [Concomitant]
     Active Substance: EZETIMIBE
  7. IBUPROFEN [Concomitant]
     Active Substance: IBUPROFEN
  8. OXYCODONE [Concomitant]
     Active Substance: OXYCODONE
  9. PREDNISONE [Concomitant]
     Active Substance: PREDNISONE
  10. TAMOXIFEN [Concomitant]
     Active Substance: TAMOXIFEN
  11. TRAMADOL [Concomitant]
     Active Substance: TRAMADOL

REACTIONS (1)
  - Disease progression [None]
